FAERS Safety Report 8836132 (Version 2)
Quarter: 2012Q4

REPORT INFORMATION
  Report Type: 
  Country: US (occurrence: US)
  Receive Date: 20121011
  Receipt Date: 20121026
  Transmission Date: 20130627
  Serious: Yes (Other)
  Sender: FDA-Public Use
  Company Number: PHEH2012US019721

PATIENT
  Age: 69 Year
  Sex: Female

DRUGS (4)
  1. DIOVAN [Suspect]
     Indication: BLOOD PRESSURE
     Route: 048
  2. EXCEDRIN BACK AND BODY [Concomitant]
     Indication: BACK PAIN
     Dosage: as needed
     Route: 048
  3. EXCEDRIN EXTRA STRENGTH [Concomitant]
     Indication: HEADACHE
     Dosage: as needed
     Route: 048
  4. IBUPROFEN [Concomitant]
     Indication: PAIN
     Dosage: as needed
     Route: 048

REACTIONS (5)
  - Diabetes mellitus [Unknown]
  - Spinal osteoarthritis [Unknown]
  - Arthritis [Unknown]
  - Gait disturbance [Unknown]
  - Headache [Unknown]
